FAERS Safety Report 23703405 (Version 3)
Quarter: 2024Q4

REPORT INFORMATION
  Report Type: Report from Study
  Country: US (occurrence: US)
  Receive Date: 20240403
  Receipt Date: 20241217
  Transmission Date: 20250115
  Serious: Yes (Hospitalization, Other)
  Sender: NOVARTIS
  Company Number: US-002147023-NVSC2024US068114

PATIENT
  Age: 39 Year
  Sex: Female

DRUGS (2)
  1. ILARIS [Suspect]
     Active Substance: CANAKINUMAB
     Indication: Pyrexia
     Dosage: 300 MG, Q4W
     Route: 058
     Dates: start: 2023, end: 202401
  2. ILARIS [Suspect]
     Active Substance: CANAKINUMAB
     Dosage: 300 MG, QMO
     Route: 058
     Dates: start: 20240329

REACTIONS (19)
  - C-reactive protein increased [Not Recovered/Not Resolved]
  - Abdominal pain [Unknown]
  - Post procedural complication [Unknown]
  - Abscess [Unknown]
  - Dizziness [Unknown]
  - Tremor [Unknown]
  - Urinary tract infection [Unknown]
  - Tachycardia [Unknown]
  - Hypertension [Unknown]
  - Nephritis [Not Recovered/Not Resolved]
  - Hepatic steatosis [Not Recovered/Not Resolved]
  - Infection [Recovered/Resolved]
  - Pyrexia [Not Recovered/Not Resolved]
  - Condition aggravated [Not Recovered/Not Resolved]
  - Syringe issue [Unknown]
  - Incorrect dose administered by device [Unknown]
  - Illness [Unknown]
  - Inappropriate schedule of product administration [Unknown]
  - Adverse event [Unknown]

NARRATIVE: CASE EVENT DATE: 20240201
